FAERS Safety Report 6974957-9 (Version None)
Quarter: 2010Q3

REPORT INFORMATION
  Report Type: 
  Country: None (occurrence: None)
  Receive Date: 20100909
  Receipt Date: 20081217
  Transmission Date: 20110219
  Serious: No
  Sender: FDA-Public Use
  Company Number: US-WYE-H07769209

PATIENT
  Sex: Female

DRUGS (3)
  1. PRISTIQ [Suspect]
     Indication: PANIC ATTACK
     Route: 048
     Dates: start: 20081109
  2. PRISTIQ [Suspect]
     Indication: DEPRESSION
  3. XANAX [Concomitant]
     Indication: ANXIETY
     Dosage: AS NEEDED

REACTIONS (6)
  - ANXIETY [None]
  - DIZZINESS [None]
  - DYSPEPSIA [None]
  - FATIGUE [None]
  - HEADACHE [None]
  - PALPITATIONS [None]
